FAERS Safety Report 7278163-2 (Version None)
Quarter: 2011Q1

REPORT INFORMATION
  Report Type: 
  Country: None (occurrence: None)
  Receive Date: 20110207
  Receipt Date: 20110202
  Transmission Date: 20110831
  Serious: Yes (Other)
  Sender: FDA-Public Use
  Company Number: A0911446A

PATIENT
  Age: 59 Year
  Sex: Female

DRUGS (7)
  1. NIACIN [Concomitant]
  2. ASPIRIN [Concomitant]
  3. LAMOTRIGINE [Suspect]
     Indication: TRIGEMINAL NEURALGIA
     Dosage: 100MG TWICE PER DAY
     Route: 048
     Dates: start: 20100801
  4. SIMVASTATIN [Concomitant]
  5. BACLOFEN [Concomitant]
  6. LEVOXYL [Concomitant]
  7. ESTROGEN + PROGESTERONE [Concomitant]

REACTIONS (7)
  - VISION BLURRED [None]
  - DYSGRAPHIA [None]
  - PYREXIA [None]
  - DRY MOUTH [None]
  - URINARY TRACT DISORDER [None]
  - MUSCLE TWITCHING [None]
  - DIZZINESS [None]
